FAERS Safety Report 7514537-X (Version None)
Quarter: 2011Q2

REPORT INFORMATION
  Report Type: 
  Country: None (occurrence: None)
  Receive Date: 20110601
  Receipt Date: 20101215
  Transmission Date: 20111010
  Serious: No
  Sender: FDA-Public Use
  Company Number: US-BAYER-2010-006552

PATIENT
  Age: 33 Year
  Sex: Female

DRUGS (1)
  1. AVELOX [Suspect]
     Indication: PNEUMONIA
     Dosage: 400MG, QD
     Route: 048

REACTIONS (5)
  - CHEST PAIN [None]
  - MYALGIA [None]
  - ABDOMINAL PAIN [None]
  - ANXIETY [None]
  - VISUAL IMPAIRMENT [None]
